FAERS Safety Report 8029555-5 (Version None)
Quarter: 2012Q1

REPORT INFORMATION
  Report Type: 
  Country: None (occurrence: None)
  Receive Date: 20120109
  Receipt Date: 20120104
  Transmission Date: 20120608
  Serious: No
  Sender: FDA-Public Use
  Company Number: US-PFIZER INC-2012002845

PATIENT
  Sex: Male
  Weight: 83.9 kg

DRUGS (6)
  1. LIPITOR [Suspect]
     Indication: BLOOD CHOLESTEROL INCREASED
     Dosage: 10 MG, DAILY
     Route: 048
     Dates: end: 20111001
  2. METFORMIN HCL [Interacting]
     Indication: DIABETES MELLITUS
     Dosage: 500 MG TWO TABLETS DAILY AT NIGHT
     Route: 048
  3. LIBRAX [Interacting]
     Indication: ABDOMINAL DISCOMFORT
     Dosage: CHLORDIAZEPOXIDE/ CLIDINIUM BROMIDE 5/2.5 MG, 2X/DAY
     Route: 048
  4. CIALIS [Interacting]
     Dosage: 20 MG, AS NEEDED
     Route: 048
  5. GLIPIZIDE [Interacting]
     Indication: DIABETES MELLITUS
     Dosage: 10 MG, 2X/DAY
     Route: 048
     Dates: start: 19930101
  6. RAMIPRIL [Interacting]
     Indication: HYPERTENSION
     Dosage: 10 MG, DAILY
     Route: 048

REACTIONS (4)
  - OEDEMA PERIPHERAL [None]
  - ASTHENIA [None]
  - DRUG INTERACTION [None]
  - PAIN IN EXTREMITY [None]
